FAERS Safety Report 6829758-9 (Version None)
Quarter: 2010Q3

REPORT INFORMATION
  Report Type: 
  Country: None (occurrence: None)
  Receive Date: 20100709
  Receipt Date: 20070919
  Transmission Date: 20110219
  Serious: No
  Sender: FDA-Public Use
  Company Number: US-PFIZER INC-2007016228

PATIENT
  Sex: Female
  Weight: 46.27 kg

DRUGS (2)
  1. CHANTIX [Suspect]
     Indication: SMOKING CESSATION THERAPY
     Dates: start: 20070202, end: 20070201
  2. VITAMINS [Concomitant]

REACTIONS (2)
  - DYSGEUSIA [None]
  - FEELING ABNORMAL [None]
